FAERS Safety Report 5295498-3 (Version None)
Quarter: 2007Q2

REPORT INFORMATION
  Report Type: 
  Country: None (occurrence: None)
  Receive Date: 20070405
  Receipt Date: 20070323
  Transmission Date: 20071010
  Serious: Yes (Life-Threatening, Hospitalization, Other)
  Sender: FDA-Public Use
  Company Number: WAES 0704USA00106

PATIENT
  Age: 71 Year
  Sex: Female

DRUGS (12)
  1. VASOTEC RPD [Suspect]
     Dosage: 2.5 MG/DAILY PO
     Route: 048
     Dates: start: 20070121, end: 20070215
  2. TAB 0653A-BLINDED THERAPY [Suspect]
     Indication: ACUTE CORONARY SYNDROME
     Dosage: PO
     Route: 048
     Dates: start: 20070119
  3. TAB 0733-BLINDED THERAPY [Suspect]
     Indication: ACUTE CORONARY SYNDROME
     Dosage: PO
     Route: 048
     Dates: start: 20070119
  4. TAB PLACEBO (UNSPECIFIED) [Suspect]
     Indication: ACUTE CORONARY SYNDROME
     Dosage: PO
     Route: 048
     Dates: start: 20070119
  5. DIURAL [Concomitant]
  6. ASPIRIN [Concomitant]
  7. CLOPIDOGREL BISULFATE [Concomitant]
  8. DIGOXIN [Concomitant]
  9. POTASSIUM ACETATE [Concomitant]
  10. PREDNISOLONE [Concomitant]
  11. SPIRONOLACTONE [Concomitant]
  12. TIBOLONE [Concomitant]

REACTIONS (6)
  - ALANINE AMINOTRANSFERASE INCREASED [None]
  - BLOOD SODIUM DECREASED [None]
  - DRUG HYPERSENSITIVITY [None]
  - PLATELET COUNT INCREASED [None]
  - SPEECH DISORDER [None]
  - WHITE BLOOD CELL COUNT INCREASED [None]
